FAERS Safety Report 25893374 (Version 2)
Quarter: 2025Q4

REPORT INFORMATION
  Report Type: Report from Study
  Country: IN (occurrence: IN)
  Receive Date: 20251008
  Receipt Date: 20251028
  Transmission Date: 20260118
  Serious: Yes (Hospitalization, Other)
  Sender: CIPLA
  Company Number: IN-CIPLA (EU) LIMITED-2025IN12178

PATIENT

DRUGS (10)
  1. SPIRONOLACTONE\TORSEMIDE [Suspect]
     Active Substance: SPIRONOLACTONE\TORSEMIDE
     Indication: Fluid retention
     Dosage: UNK, BID (1AND ? TAB TOTAL IN A DAY AT 9 AM 1 TAB AND 3 PM ? TAB)
     Route: 048
     Dates: start: 2025
  2. WARFARIN SODIUM [Suspect]
     Active Substance: WARFARIN SODIUM
     Indication: Anticoagulant therapy
     Dosage: UNK, QD, 1TAB (ALTERNATE DAY) FOR WARF 3 PATIENT WAS TAKING (1 WARF 2+ 1TAB WAF1)
     Route: 048
     Dates: start: 2018
  3. WARFARIN SODIUM [Suspect]
     Active Substance: WARFARIN SODIUM
     Dosage: UNK, QD, 1TAB (ALTERNATE DAY) FOR WARF 4 PATIENT IS TAKING (WARF 2+WARF 2)
     Route: 048
     Dates: start: 2018
  4. WARFARIN SODIUM [Suspect]
     Active Substance: WARFARIN SODIUM
     Dosage: UNK, QD, 1TAB (ALTERNATE DAY) FOR WARF 3 PATIENT WAS TAKING (1 WARF 2+ 1TAB WAF1)
     Route: 048
  5. WARFARIN SODIUM [Suspect]
     Active Substance: WARFARIN SODIUM
     Dosage: UNK, QD, 1TAB (ALTERNATE DAY) FOR WARF 3 PATIENT WAS TAKING (1 WARF 2+ 1TAB WAF1)
     Route: 048
  6. SULFASALAZINE [Concomitant]
     Active Substance: SULFASALAZINE
     Indication: Product used for unknown indication
     Dosage: UNK
     Route: 065
  7. TOFZA [Concomitant]
     Indication: Product used for unknown indication
     Dosage: UNK (EXTENDED RELEASE)
     Route: 065
  8. NEPTAZ [Concomitant]
     Indication: Product used for unknown indication
     Dosage: UNK (STRENGTH:50 UNITS UNSPECIFIED)
     Route: 065
  9. METOCARD XL [Concomitant]
     Indication: Product used for unknown indication
     Dosage: UNK (STRENGTH:25 UNITS UNSPECIFIED)
     Route: 065
  10. LEVOTHYROXINE [Concomitant]
     Active Substance: LEVOTHYROXINE
     Indication: Product used for unknown indication
     Dosage: UNK (STRENGTH:100 UNITS UNSPECIFIED)
     Route: 065

REACTIONS (14)
  - Cardiac valve disease [Not Recovered/Not Resolved]
  - Cerebrovascular accident [Not Recovered/Not Resolved]
  - Gait disturbance [Recovered/Resolved]
  - Pain in extremity [Not Recovered/Not Resolved]
  - Neck pain [Not Recovered/Not Resolved]
  - Pulse abnormal [Recovered/Resolved]
  - Haemoglobin decreased [Recovered/Resolved]
  - International normalised ratio fluctuation [Recovered/Resolved]
  - Tremor [Unknown]
  - Vertigo [Unknown]
  - International normalised ratio decreased [Unknown]
  - Blood creatinine increased [Recovered/Resolved]
  - Asthenia [Recovered/Resolved]
  - Arthralgia [Not Recovered/Not Resolved]

NARRATIVE: CASE EVENT DATE: 20200101
